FAERS Safety Report 8608161 (Version 2)
Quarter: 2013Q2

REPORT INFORMATION
  Report Type: Spontaneous
  Country: US (occurrence: US)
  Receive Date: 20120611
  Receipt Date: 20130617
  Transmission Date: 20140414
  Serious: Yes (Other)
  Sender: FDA-Public Use
  Company Number: US-ASTRAZENECA-2012SE35377

PATIENT
  Age: 710 Month
  Sex: Female
  Weight: 70.3 kg

DRUGS (3)
  1. NEXIUM [Suspect]
     Indication: GASTROOESOPHAGEAL REFLUX DISEASE
     Route: 048
  2. PROTONIX [Concomitant]
     Indication: GASTROOESOPHAGEAL REFLUX DISEASE
  3. PREMPRO [Concomitant]
     Indication: HORMONE REPLACEMENT THERAPY
     Dosage: DAILY

REACTIONS (7)
  - Cerebrovascular accident [Unknown]
  - Osteoporosis [Unknown]
  - Wrist fracture [Unknown]
  - Radius fracture [Unknown]
  - Multiple fractures [Unknown]
  - Fall [Unknown]
  - Spinal osteoarthritis [Unknown]
